FAERS Safety Report 4776498-6 (Version None)
Quarter: 2005Q3

REPORT INFORMATION
  Report Type: 
  Country: None (occurrence: None)
  Receive Date: 20050915
  Receipt Date: 20050830
  Transmission Date: 20060218
  Serious: Yes (Hospitalization)
  Sender: FDA-Public Use
  Company Number: DSA_26937_2005

PATIENT
  Age: 57 Year
  Sex: Male

DRUGS (6)
  1. ENALAPRIL MALEATE [Suspect]
     Indication: ESSENTIAL HYPERTENSION
     Dosage: 5 MG QD PO
     Route: 048
     Dates: start: 20050715, end: 20050715
  2. ROCEPHIN [Concomitant]
  3. CATAPRESAN [Concomitant]
  4. TRANDATE [Concomitant]
  5. NITROGLYCERIN [Concomitant]
  6. OMEPRAZOLE [Concomitant]

REACTIONS (2)
  - DYSPHAGIA [None]
  - TONGUE OEDEMA [None]
